FAERS Safety Report 11696519 (Version 1)
Quarter: 2015Q4

REPORT INFORMATION
  Report Type: Spontaneous
  Country: DE (occurrence: DE)
  Receive Date: 20151104
  Receipt Date: 20151104
  Transmission Date: 20160304
  Serious: Yes (Hospitalization)
  Sender: FDA-Public Use
  Company Number: DE-SA-2015SA173298

PATIENT
  Age: 31 Year
  Sex: Female

DRUGS (1)
  1. LEMTRADA [Suspect]
     Active Substance: ALEMTUZUMAB
     Indication: MULTIPLE SCLEROSIS
     Route: 041
     Dates: start: 201510

REACTIONS (3)
  - Multiple sclerosis relapse [Not Recovered/Not Resolved]
  - Thrombocytopenia [Recovering/Resolving]
  - Paraparesis [Not Recovered/Not Resolved]

NARRATIVE: CASE EVENT DATE: 201510
